FAERS Safety Report 8959699 (Version 1)
Quarter: 2012Q4

REPORT INFORMATION
  Report Type: 
  Country: US (occurrence: US)
  Receive Date: 20121212
  Receipt Date: 20121212
  Transmission Date: 20130627
  Serious: No
  Sender: FDA-Public Use
  Company Number: US-TEVA-359038USA

PATIENT
  Sex: Female

DRUGS (8)
  1. BUDESONIDE [Suspect]
     Dosage: 0.5 mg/2ml
     Route: 055
     Dates: start: 20120908
  2. ALPRAZOLAM [Concomitant]
  3. LOSARTAN [Concomitant]
  4. DOXAZOSIN MESILATE [Concomitant]
  5. FUROSEMIDE [Concomitant]
  6. LEVOTHYROXINE [Concomitant]
  7. OMEPRAZOLE [Concomitant]
  8. PERFOROMIST [Concomitant]
     Dosage: 20 mcg/2 ml

REACTIONS (3)
  - Hypoaesthesia oral [Unknown]
  - Chest pain [Unknown]
  - Lip swelling [Unknown]
